FAERS Safety Report 6473936-8 (Version None)
Quarter: 2009Q4

REPORT INFORMATION
  Report Type: 
  Country: None (occurrence: None)
  Receive Date: 20091204
  Receipt Date: 20091021
  Transmission Date: 20100525
  Serious: No
  Sender: FDA-Public Use
  Company Number: A0812787A

PATIENT

DRUGS (1)
  1. LAMOTRIGINE [Suspect]

REACTIONS (1)
  - RASH [None]
